FAERS Safety Report 24264283 (Version 1)
Quarter: 2024Q3

REPORT INFORMATION
  Report Type: Spontaneous
  Country: US (occurrence: None)
  Receive Date: 20240828
  Receipt Date: 20240828
  Transmission Date: 20241017
  Serious: Yes (Other)
  Sender: Public
  Company Number: None

PATIENT
  Age: 78 Year
  Sex: Male

DRUGS (15)
  1. NUBEQA [Suspect]
     Active Substance: DAROLUTAMIDE
     Indication: Prostate cancer
     Dosage: 600 MG TWICE A DAY ORAL ?
     Route: 048
     Dates: start: 20240722, end: 20240809
  2. ORGOVYX [Concomitant]
     Active Substance: RELUGOLIX
  3. ALLOPURINOL [Concomitant]
     Active Substance: ALLOPURINOL
  4. TYLENOL [Concomitant]
     Active Substance: ACETAMINOPHEN
  5. CARVEDILOL [Concomitant]
     Active Substance: CARVEDILOL
  6. ASPIRIN [Concomitant]
     Active Substance: ASPIRIN
  7. CLONIDINE [Concomitant]
     Active Substance: CLONIDINE
  8. EZETIMIBE [Concomitant]
     Active Substance: EZETIMIBE
  9. IRON [Concomitant]
     Active Substance: IRON
  10. HYDRALAZINE [Concomitant]
     Active Substance: HYDRALAZINE HYDROCHLORIDE
  11. LEVOTHYROXINE [Concomitant]
     Active Substance: LEVOTHYROXINE\LEVOTHYROXINE SODIUM
  12. LOSARTAN [Concomitant]
     Active Substance: LOSARTAN\LOSARTAN POTASSIUM
  13. LOVASTATIN [Concomitant]
     Active Substance: LOVASTATIN
  14. PANTOPRAZOLE [Concomitant]
     Active Substance: PANTOPRAZOLE
  15. TRAMADOL [Concomitant]
     Active Substance: TRAMADOL\TRAMADOL HYDROCHLORIDE

REACTIONS (2)
  - Vision blurred [None]
  - Therapy interrupted [None]

NARRATIVE: CASE EVENT DATE: 20240806
